FAERS Safety Report 24358658 (Version 1)
Quarter: 2024Q3

REPORT INFORMATION
  Report Type: Spontaneous
  Country: US (occurrence: None)
  Receive Date: 20240924
  Receipt Date: 20240924
  Transmission Date: 20241016
  Serious: Yes (Disabling)
  Sender: Public
  Company Number: None

PATIENT
  Age: 51 Year
  Sex: Male
  Weight: 103.5 kg

DRUGS (1)
  1. ZEPBOUND [Suspect]
     Active Substance: TIRZEPATIDE
     Dosage: 1 INJECTION WEEKLY INTRAMUSCULAR ?
     Route: 030
     Dates: start: 20240301, end: 20240918

REACTIONS (1)
  - Allodynia [None]

NARRATIVE: CASE EVENT DATE: 20240901
